FAERS Safety Report 5963458-2 (Version None)
Quarter: 2008Q4

REPORT INFORMATION
  Report Type: 
  Country: None (occurrence: None)
  Receive Date: 20081124
  Receipt Date: 20081119
  Transmission Date: 20090506
  Serious: Yes (Hospitalization)
  Sender: FDA-Public Use
  Company Number: US-ASTRAZENECA-2008UW25899

PATIENT
  Age: 73 Year
  Sex: Female

DRUGS (2)
  1. PLENDIL [Suspect]
     Route: 048
     Dates: start: 20040629
  2. TOPROL-XL [Suspect]
     Route: 048
     Dates: start: 20040629

REACTIONS (1)
  - CONCUSSION [None]
